FAERS Safety Report 7730670-1 (Version None)
Quarter: 2011Q3

REPORT INFORMATION
  Report Type: 
  Country: None (occurrence: None)
  Receive Date: 20110906
  Receipt Date: 20110824
  Transmission Date: 20111222
  Serious: Yes (Hospitalization)
  Sender: FDA-Public Use
  Company Number: US-GLAXOSMITHKLINE-A0862783A

PATIENT
  Age: 61 Year
  Sex: Male
  Weight: 79.4 kg

DRUGS (11)
  1. LISINOPRIL [Concomitant]
  2. LASIX [Concomitant]
  3. LANTUS [Concomitant]
  4. ALLOPURINOL [Concomitant]
  5. GABAPENTIN [Concomitant]
  6. CITALOPRAM [Concomitant]
  7. ASPIRIN [Concomitant]
  8. LOVAZA [Concomitant]
  9. AVANDARYL [Suspect]
     Indication: DIABETES MELLITUS
     Route: 048
     Dates: start: 20030101, end: 20090216
  10. NABUMETONE [Concomitant]
  11. VYTORIN [Concomitant]

REACTIONS (3)
  - ATRIAL FIBRILLATION [None]
  - RENAL FAILURE [None]
  - CARDIAC FAILURE CONGESTIVE [None]
